FAERS Safety Report 5016036-6 (Version None)
Quarter: 2006Q2

REPORT INFORMATION
  Report Type: 
  Country: None (occurrence: None)
  Receive Date: 20060414
  Receipt Date: 20060310
  Transmission Date: 20061013
  Serious: No
  Sender: FDA-Public Use
  Company Number: 2006SP001181

PATIENT
  Age: 58 Year
  Sex: Male

DRUGS (5)
  1. LUNESTA [Suspect]
     Indication: INSOMNIA
     Dosage: ORAL
     Route: 048
     Dates: start: 20060201
  2. INSULIN [Concomitant]
  3. GLUCOPHAGE [Concomitant]
  4. ZOCOR [Concomitant]
  5. LOTENSIN [Concomitant]

REACTIONS (1)
  - BLOOD GLUCOSE INCREASED [None]
